FAERS Safety Report 25480838 (Version 1)
Quarter: 2025Q2

REPORT INFORMATION
  Report Type: Spontaneous
  Country: US (occurrence: US)
  Receive Date: 20250625
  Receipt Date: 20250625
  Transmission Date: 20250717
  Serious: Yes (Death, Hospitalization, Other)
  Sender: ASTELLAS
  Company Number: US-ASTELLAS-2025-AER-034339

PATIENT
  Age: 72 Year
  Sex: Female

DRUGS (2)
  1. TACROLIMUS [Suspect]
     Active Substance: TACROLIMUS
     Indication: T-cell lymphoma
     Route: 065
     Dates: start: 202312
  2. INFLIXIMAB [Concomitant]
     Active Substance: INFLIXIMAB
     Indication: T-cell lymphoma
     Route: 065
     Dates: start: 202312

REACTIONS (8)
  - Sepsis [Fatal]
  - Alpha haemolytic streptococcal infection [Fatal]
  - Septic shock [Fatal]
  - Condition aggravated [Fatal]
  - Acute respiratory failure [Fatal]
  - Stenotrophomonas infection [Fatal]
  - Cytomegalovirus infection reactivation [Unknown]
  - Off label use [Unknown]

NARRATIVE: CASE EVENT DATE: 20231201
